FAERS Safety Report 5463817-0 (Version None)
Quarter: 2007Q3

REPORT INFORMATION
  Report Type: 
  Country: None (occurrence: None)
  Receive Date: 20070919
  Receipt Date: 20070907
  Transmission Date: 20080115
  Serious: Yes (Hospitalization)
  Sender: FDA-Public Use
  Company Number: FABR-12124

PATIENT
  Age: 62 Year
  Sex: Male

DRUGS (10)
  1. FABRAZYME [Suspect]
     Indication: FABRY'S DISEASE
     Dosage: 70 MG Q2WKS IV
     Route: 042
     Dates: start: 20050701
  2. FABRAZYME [Suspect]
     Indication: FABRY'S DISEASE
     Dosage: 1 MG/KG Q2WKS IV
     Route: 042
     Dates: start: 20040205, end: 20050622
  3. FABRAZYME [Suspect]
     Indication: FABRY'S DISEASE
     Dosage: 1 MG/KG Q2WKS IV
     Route: 042
     Dates: start: 20020709, end: 20040107
  4. LASIX [Suspect]
     Indication: POLYURIA
  5. COUMADIN [Concomitant]
  6. COREG [Concomitant]
  7. ZANTAC [Concomitant]
  8. LORTAB [Concomitant]
  9. KLONOPIN [Concomitant]
  10. NITROQUICK [Concomitant]

REACTIONS (4)
  - BLOOD CREATINE INCREASED [None]
  - BLOOD POTASSIUM DECREASED [None]
  - BLOOD UREA INCREASED [None]
  - CARDIAC FAILURE CONGESTIVE [None]
